FAERS Safety Report 8437718-X (Version None)
Quarter: 2012Q2

REPORT INFORMATION
  Report Type: 
  Country: None (occurrence: None)
  Receive Date: 20120614
  Receipt Date: 20120223
  Transmission Date: 20120825
  Serious: No
  Sender: FDA-Public Use
  Company Number: US-GLAXOSMITHKLINE-A0967113A

PATIENT
  Age: 55 Year
  Sex: Female

DRUGS (4)
  1. NICODERM CQ [Suspect]
     Indication: EX-TOBACCO USER
  2. NICORETTE (MINT) [Suspect]
     Indication: EX-TOBACCO USER
  3. NICODERM CQ [Suspect]
     Indication: EX-TOBACCO USER
  4. NICODERM CQ [Suspect]
     Indication: EX-TOBACCO USER

REACTIONS (6)
  - DRUG INEFFECTIVE [None]
  - NICOTINE DEPENDENCE [None]
  - MALAISE [None]
  - FEELING ABNORMAL [None]
  - OVERDOSE [None]
  - NAUSEA [None]
